FAERS Safety Report 9618100 (Version 1)
Quarter: 2013Q4

REPORT INFORMATION
  Report Type: Spontaneous
  Country: PT (occurrence: PT)
  Receive Date: 20131013
  Receipt Date: 20131013
  Transmission Date: 20140711
  Serious: Yes (Hospitalization, Disabling, Other)
  Sender: FDA-Public Use
  Company Number: PT-009507513-1310PRT000808

PATIENT
  Age: 55 Year
  Sex: Male

DRUGS (5)
  1. BETAMETHASONE [Suspect]
     Dosage: 14MG/2ML
  2. XYLOCAINE [Concomitant]
  3. PHYSIOLOGICA GIFRER [Concomitant]
  4. METFORMIN [Concomitant]
  5. INSULIN [Concomitant]

REACTIONS (1)
  - Necrotising fasciitis [Recovering/Resolving]
